FAERS Safety Report 4877332-6 (Version None)
Quarter: 2006Q1

REPORT INFORMATION
  Report Type: 
  Country: None (occurrence: None)
  Receive Date: 20060106
  Receipt Date: 20051222
  Transmission Date: 20060701
  Serious: Yes (Other)
  Sender: FDA-Public Use
  Company Number: UA-2005-027660

PATIENT
  Age: 68 Year
  Sex: Male

DRUGS (3)
  1. ULTRAVIST 370 [Suspect]
     Indication: COMPUTERISED TOMOGRAM ABDOMEN
     Dosage: SEE IMAGE
     Dates: start: 20051216, end: 20051216
  2. PREDNISOLONUM [Concomitant]
  3. HYDROCORTISONE [Concomitant]

REACTIONS (1)
  - ANAPHYLACTIC SHOCK [None]
